FAERS Safety Report 5120562-9 (Version None)
Quarter: 2006Q4

REPORT INFORMATION
  Report Type: 
  Country: None (occurrence: None)
  Receive Date: 20061004
  Receipt Date: 20060926
  Transmission Date: 20070319
  Serious: Yes (Other)
  Sender: FDA-Public Use
  Company Number: US-ROCHE-465126

PATIENT
  Age: 59 Year
  Sex: Female

DRUGS (3)
  1. BONIVA [Suspect]
     Indication: DRUG USE FOR UNKNOWN INDICATION
     Route: 048
  2. INSULIN [Concomitant]
     Route: 065
  3. 1 CONCOMITANT DRUG [Concomitant]

REACTIONS (1)
  - RHABDOMYOLYSIS [None]
